FAERS Safety Report 8068575-1 (Version None)
Quarter: 2012Q1

REPORT INFORMATION
  Report Type: 
  Country: None (occurrence: None)
  Receive Date: 20120124
  Receipt Date: 20111107
  Transmission Date: 20120608
  Serious: No
  Sender: FDA-Public Use
  Company Number: US-AMGEN-USASP2011058088

PATIENT
  Age: 86 Year
  Sex: Female

DRUGS (5)
  1. PROLIA [Suspect]
     Indication: OSTEOPOROSIS POSTMENOPAUSAL
     Dosage: 60 MG, Q6MO
     Dates: start: 20110101
  2. MULTI-VITAMIN [Concomitant]
     Dosage: UNK
  3. MEFORMIN [Concomitant]
     Dosage: UNK
  4. VITAMIN D [Concomitant]
  5. ALPRAZOLAM [Concomitant]
     Dosage: UNK

REACTIONS (6)
  - INSOMNIA [None]
  - FEELING ABNORMAL [None]
  - DISCOMFORT [None]
  - RASH VESICULAR [None]
  - RASH PRURITIC [None]
  - SKIN REACTION [None]
